FAERS Safety Report 12676099 (Version 1)
Quarter: 2016Q3

REPORT INFORMATION
  Report Type: Spontaneous
  Country: US (occurrence: None)
  Receive Date: 20160822
  Receipt Date: 20160822
  Transmission Date: 20161109
  Serious: No
  Sender: FDA-Public Use
  Company Number: None

PATIENT
  Age: 55 Year
  Sex: Female
  Weight: 136.08 kg

DRUGS (14)
  1. RITILAN [Concomitant]
  2. FLEXERAL [Concomitant]
  3. ZOLOFT [Concomitant]
     Active Substance: SERTRALINE HYDROCHLORIDE
  4. TORVASTTATINJANUME [Concomitant]
  5. GLIPIZIDE. [Concomitant]
     Active Substance: GLIPIZIDE
  6. WATER PILL [Concomitant]
     Active Substance: UNSPECIFIED INGREDIENT
  7. BUSPRIPONE [Concomitant]
  8. ACTOS [Suspect]
     Active Substance: PIOGLITAZONE HYDROCHLORIDE
     Indication: DIABETES MELLITUS
     Route: 048
  9. AMBIEN [Concomitant]
     Active Substance: ZOLPIDEM TARTRATE
  10. PANTORPAZOLE [Concomitant]
  11. VALIUUM [Concomitant]
  12. ESTRACE [Concomitant]
     Active Substance: ESTRADIOL
  13. IBROPHEN [Concomitant]
  14. INSULIN [Concomitant]
     Active Substance: INSULIN NOS

REACTIONS (6)
  - Depression [None]
  - Swelling [None]
  - Dyspnoea [None]
  - Anxiety [None]
  - Gait disturbance [None]
  - Weight increased [None]
